FAERS Safety Report 21544279 (Version 2)
Quarter: 2023Q1

REPORT INFORMATION
  Report Type: Report from Study
  Country: US (occurrence: US)
  Receive Date: 20221102
  Receipt Date: 20230106
  Transmission Date: 20230418
  Serious: No
  Sender: FDA-Public Use
  Company Number: US-ABBVIE-22K-163-4505197-00

PATIENT
  Sex: Male

DRUGS (2)
  1. IMBRUVICA [Suspect]
     Active Substance: IBRUTINIB
     Indication: Marginal zone lymphoma
     Route: 048
     Dates: start: 202208
  2. IMBRUVICA [Suspect]
     Active Substance: IBRUTINIB
     Indication: Marginal zone lymphoma
     Route: 048

REACTIONS (27)
  - Flatulence [Unknown]
  - Myalgia [Unknown]
  - Bone pain [Recovered/Resolved]
  - Adverse drug reaction [Unknown]
  - Feeling abnormal [Unknown]
  - Headache [Unknown]
  - Red blood cell count decreased [Unknown]
  - White blood cell count increased [Unknown]
  - Fatigue [Recovered/Resolved]
  - Discouragement [Recovering/Resolving]
  - Nausea [Unknown]
  - Anaemia [Unknown]
  - Myalgia [Recovered/Resolved]
  - Dyspnoea exertional [Unknown]
  - Fatigue [Unknown]
  - Pyrexia [Unknown]
  - Red blood cell count abnormal [Unknown]
  - Eructation [Unknown]
  - White blood cell count decreased [Unknown]
  - Bone pain [Unknown]
  - Gastrointestinal tract irritation [Unknown]
  - Hiccups [Unknown]
  - Pharyngeal disorder [Not Recovered/Not Resolved]
  - Blood calcium decreased [Unknown]
  - Oxygen saturation increased [Unknown]
  - Red blood cell count increased [Unknown]
  - Fungal skin infection [Unknown]

NARRATIVE: CASE EVENT DATE: 20220101
